FAERS Safety Report 5419294-9 (Version None)
Quarter: 2007Q3

REPORT INFORMATION
  Report Type: 
  Country: None (occurrence: None)
  Receive Date: 20070815
  Receipt Date: 20070806
  Transmission Date: 20080115
  Serious: Yes (Hospitalization)
  Sender: FDA-Public Use
  Company Number: 2007BI012496

PATIENT
  Age: 58 Year
  Sex: Female

DRUGS (11)
  1. AVONEX [Suspect]
     Indication: MULTIPLE SCLEROSIS
     Dosage: 30 UG;QW; IM
     Route: 030
     Dates: start: 19970101, end: 20040701
  2. AVONEX [Suspect]
     Indication: MULTIPLE SCLEROSIS
     Dosage: 30 UG;QW; IM
     Route: 030
     Dates: start: 20040701, end: 20050201
  3. SYNTHROID [Concomitant]
  4. NEURONTIN [Concomitant]
  5. VALIUM [Concomitant]
  6. HYDROCODONE BITARTRATE [Concomitant]
  7. FLEXERIL [Concomitant]
  8. NAPROSYN [Concomitant]
  9. ULTRAM [Concomitant]
  10. LOTRISONE [Concomitant]
  11. AUGMENTIN '125' [Concomitant]

REACTIONS (11)
  - CHOLELITHIASIS [None]
  - FALL [None]
  - HYPOTHYROIDISM [None]
  - LIGAMENT INJURY [None]
  - MULTIPLE SCLEROSIS [None]
  - MUSCLE SPASMS [None]
  - MUSCULOSKELETAL PAIN [None]
  - OSTEOPOROSIS [None]
  - PAIN IN EXTREMITY [None]
  - SENSATION OF HEAVINESS [None]
  - URINARY TRACT INFECTION ENTEROCOCCAL [None]
